FAERS Safety Report 22096337 (Version 3)
Quarter: 2025Q3

REPORT INFORMATION
  Report Type: Spontaneous
  Country: JP (occurrence: JP)
  Receive Date: 20230315
  Receipt Date: 20250812
  Transmission Date: 20251020
  Serious: Yes (Other)
  Sender: AMGEN
  Company Number: JP-AMGEN-JPNSP2023041573

PATIENT
  Age: 60 Year
  Sex: Male

DRUGS (4)
  1. BLINATUMOMAB [Suspect]
     Active Substance: BLINATUMOMAB
     Indication: Acute lymphocytic leukaemia recurrent
     Route: 065
     Dates: start: 2021
  2. BLINATUMOMAB [Suspect]
     Active Substance: BLINATUMOMAB
     Route: 065
     Dates: end: 2021
  3. PONATINIB [Concomitant]
     Active Substance: PONATINIB
     Indication: Acute lymphocytic leukaemia recurrent
     Dosage: 30 MILLIGRAM, QD
  4. PONATINIB [Concomitant]
     Active Substance: PONATINIB

REACTIONS (5)
  - Acute graft versus host disease in skin [Recovering/Resolving]
  - Acute graft versus host disease in intestine [Recovering/Resolving]
  - Gastrointestinal toxicity [Unknown]
  - Cytokine release syndrome [Recovering/Resolving]
  - Adenoviral haemorrhagic cystitis [Recovering/Resolving]

NARRATIVE: CASE EVENT DATE: 20210101
